FAERS Safety Report 5202614-8 (Version None)
Quarter: 2006Q4

REPORT INFORMATION
  Report Type: 
  Country: None (occurrence: None)
  Receive Date: 20061016
  Receipt Date: 20060808
  Transmission Date: 20070319
  Serious: No
  Sender: FDA-Public Use
  Company Number: 2006SP002952

PATIENT
  Age: 80 Year
  Sex: Female
  Weight: 72.5755 kg

DRUGS (3)
  1. LUNESTA [Suspect]
     Indication: INSOMNIA
     Dosage: 1.5 MG;HS;ORAL; SEE IMAGE
     Route: 048
     Dates: start: 20060807, end: 20060807
  2. LUNESTA [Suspect]
     Indication: INSOMNIA
     Dosage: 1.5 MG;HS;ORAL; SEE IMAGE
     Route: 048
     Dates: start: 20060807, end: 20060807
  3. LUNESTA [Suspect]
     Indication: INSOMNIA
     Dosage: 1.5 MG;HS;ORAL; SEE IMAGE
     Route: 048
     Dates: start: 20060808, end: 20060808

REACTIONS (3)
  - DYSGEUSIA [None]
  - HANGOVER [None]
  - SOMNOLENCE [None]
